FAERS Safety Report 24112912 (Version 1)
Quarter: 2024Q3

REPORT INFORMATION
  Report Type: Report from Study
  Country: US (occurrence: US)
  Receive Date: 20240719
  Receipt Date: 20240719
  Transmission Date: 20241017
  Serious: Yes (Hospitalization)
  Sender: HLS THERAPEUTICS
  Company Number: US-HLS-202400250

PATIENT
  Sex: Male

DRUGS (3)
  1. CLOZAPINE [Suspect]
     Active Substance: CLOZAPINE
     Indication: Schizoaffective disorder bipolar type
     Route: 048
  2. CLOZAPINE [Suspect]
     Active Substance: CLOZAPINE
     Indication: Schizoaffective disorder bipolar type
     Dosage: RESTARTED ON CLOZAPINE ON JUNE 16TH / 300 MG ORAL TABLETS
     Route: 048
     Dates: end: 20240626
  3. ABILIFY [Concomitant]
     Active Substance: ARIPIPRAZOLE
     Indication: Schizoaffective disorder bipolar type
     Dosage: 10MG, WILL BE INCREASED TO GO TO 400MG
     Route: 065

REACTIONS (8)
  - Mood altered [Unknown]
  - Poor quality sleep [Unknown]
  - Abnormal behaviour [Unknown]
  - Drug ineffective [Unknown]
  - Mania [Unknown]
  - Malaise [Unknown]
  - Off label use [Unknown]
  - Psychotic disorder [Unknown]
